FAERS Safety Report 10533223 (Version 1)
Quarter: 2014Q4

REPORT INFORMATION
  Report Type: Spontaneous
  Country: DE (occurrence: None)
  Receive Date: 20141020
  Receipt Date: 20141020
  Transmission Date: 20150529
  Serious: Yes (Death)
  Sender: FDA-Public Use
  Company Number: 20142130

PATIENT
  Age: 71 Year
  Sex: Female

DRUGS (1)
  1. METOJECT PEN (METHOTREXATE) [Suspect]
     Active Substance: METHOTREXATE SODIUM

REACTIONS (1)
  - Death [None]
